FAERS Safety Report 12623444 (Version 9)
Quarter: 2018Q4

REPORT INFORMATION
  Report Type: Spontaneous
  Country: US (occurrence: US)
  Receive Date: 20160804
  Receipt Date: 20181108
  Transmission Date: 20190204
  Serious: Yes (Other)
  Sender: FDA-Public Use
  Company Number: US-009507513-1608USA000604

PATIENT
  Sex: Female
  Weight: 43.99 kg

DRUGS (1)
  1. IMPLANON [Suspect]
     Active Substance: ETONOGESTREL
     Indication: CONTRACEPTION
     Dosage: CONTINOUS
     Route: 059
     Dates: start: 20130219

REACTIONS (13)
  - Irritable bowel syndrome [Unknown]
  - Complication of device removal [Unknown]
  - Incorrect product administration duration [Unknown]
  - Device dislocation [Not Recovered/Not Resolved]
  - Crohn^s disease [Unknown]
  - Autoimmune disorder [Unknown]
  - Anaemia [Unknown]
  - Complication associated with device [Not Recovered/Not Resolved]
  - No adverse event [Unknown]
  - Painful respiration [Unknown]
  - Depression [Unknown]
  - Anxiety disorder [Unknown]
  - Musculoskeletal chest pain [Unknown]

NARRATIVE: CASE EVENT DATE: 20130319
